FAERS Safety Report 16381270 (Version 2)
Quarter: 2021Q2

REPORT INFORMATION
  Report Type: Spontaneous
  Country: DE (occurrence: DE)
  Receive Date: 20190603
  Receipt Date: 20210507
  Transmission Date: 20210716
  Serious: Yes (Other)
  Sender: FDA-Public Use
  Company Number: DE-GILEAD-2019-0411125

PATIENT
  Age: 65 Year
  Sex: Male
  Weight: 76 kg

DRUGS (7)
  1. RANOLAZINE. [Suspect]
     Active Substance: RANOLAZINE
     Indication: ANGINA PECTORIS
     Dosage: 500 MG, BID, 1?0?1
     Route: 048
     Dates: start: 201611
  2. ACETYLSALICYLIC ACID [Concomitant]
     Active Substance: ASPIRIN
     Indication: MYOCARDIAL INFARCTION
     Dosage: 100 MG, 1X/DAY, 1?0?0
     Route: 048
  3. MAGNESIUM [Concomitant]
     Active Substance: MAGNESIUM
  4. ACETYLSALICYLIC ACID [Concomitant]
     Active Substance: ASPIRIN
     Dosage: 100 MG
     Route: 048
     Dates: start: 2015
  5. BIOTIN, LACTOBACILLUS ACIDOPHILUS [Concomitant]
     Indication: NUTRITIONAL SUPPLEMENTATION
     Dosage: SYMBIOLACT, 1X/DAY, 0?1?0
     Route: 048
  6. RANOLAZINE. [Suspect]
     Active Substance: RANOLAZINE
     Indication: MYOCARDIAL INFARCTION
     Dosage: 375 MG, BID, 1?0?1
     Route: 048
     Dates: start: 201508, end: 201611
  7. EZETIMIBE + SIMVASTATIN [Concomitant]
     Active Substance: EZETIMIBE\SIMVASTATIN
     Indication: LIPIDS INCREASED
     Dosage: INEGY, 10 MG/40 MG, 1X/DAY, 0?0?1

REACTIONS (6)
  - Dry skin [Not Recovered/Not Resolved]
  - Skin wrinkling [Not Recovered/Not Resolved]
  - Basal cell carcinoma [Not Recovered/Not Resolved]
  - Nausea [Not Recovered/Not Resolved]
  - Dry skin [Not Recovered/Not Resolved]
  - Pruritus [Not Recovered/Not Resolved]

NARRATIVE: CASE EVENT DATE: 2017
